FAERS Safety Report 6329060-8 (Version None)
Quarter: 2009Q3

REPORT INFORMATION
  Report Type: 
  Country: None (occurrence: None)
  Receive Date: 20090824
  Receipt Date: 20090824
  Transmission Date: 20100115
  Serious: Yes (Other)
  Sender: FDA-Public Use
  Company Number: None

PATIENT
  Age: 41 Year
  Sex: Female
  Weight: 69.8539 kg

DRUGS (4)
  1. CIPROFLOXACIN [Suspect]
     Indication: INFECTION
     Dosage: 1 PILL DAILY PO
     Route: 048
     Dates: start: 20090511, end: 20090515
  2. CIPROFLOXACIN [Suspect]
     Indication: PRURITUS GENITAL
     Dosage: 1 PILL DAILY PO
     Route: 048
     Dates: start: 20090511, end: 20090515
  3. CIPROFLOXACIN [Suspect]
     Indication: INFECTION
     Dosage: 1 PILL DAILY PO
     Route: 048
     Dates: start: 20090715, end: 20090717
  4. CIPROFLOXACIN [Suspect]
     Indication: PRURITUS GENITAL
     Dosage: 1 PILL DAILY PO
     Route: 048
     Dates: start: 20090715, end: 20090717

REACTIONS (4)
  - BACK PAIN [None]
  - MOBILITY DECREASED [None]
  - MUSCULOSKELETAL PAIN [None]
  - WEIGHT BEARING DIFFICULTY [None]
